FAERS Safety Report 6407297-7 (Version None)
Quarter: 2009Q4

REPORT INFORMATION
  Report Type: 
  Country: None (occurrence: None)
  Receive Date: 20091020
  Receipt Date: 20091015
  Transmission Date: 20100525
  Serious: Yes (Death, Hospitalization)
  Sender: FDA-Public Use
  Company Number: A0812269A

PATIENT
  Age: 38 Year
  Sex: Female

DRUGS (5)
  1. TYKERB [Suspect]
     Dosage: 250MG FIVE TIMES PER DAY
     Route: 048
     Dates: start: 20071205
  2. XELODA [Suspect]
  3. PACLITAXEL [Concomitant]
  4. ADRIAMYCIN PFS [Concomitant]
  5. TRASTUZUMAB [Concomitant]

REACTIONS (2)
  - NEOPLASM MALIGNANT [None]
  - PALMAR-PLANTAR ERYTHRODYSAESTHESIA SYNDROME [None]
